FAERS Safety Report 12779468 (Version 2)
Quarter: 2016Q4

REPORT INFORMATION
  Report Type: Report from Study
  Country: AR (occurrence: AR)
  Receive Date: 20160926
  Receipt Date: 20161007
  Transmission Date: 20170207
  Serious: Yes (Other)
  Sender: FDA-Public Use
  Company Number: PHHY2016AR130890

PATIENT
  Age: 76 Year
  Sex: Male

DRUGS (9)
  1. EXELON PATCH [Suspect]
     Active Substance: RIVASTIGMINE
     Indication: PARKINSON^S DISEASE
  2. EXELON PATCH [Suspect]
     Active Substance: RIVASTIGMINE
     Indication: AMNESIA
     Dosage: 1.5 OT, QD 1 YEAR AND A HALF / 2015
     Route: 062
  3. MANTADINE [Concomitant]
     Indication: PARKINSON^S DISEASE
     Route: 065
  4. EXELON [Suspect]
     Active Substance: RIVASTIGMINE TARTRATE
     Indication: AMNESIA
     Dosage: 1.5 MG, QD
     Route: 065
  5. EXELON [Suspect]
     Active Substance: RIVASTIGMINE TARTRATE
     Indication: PARKINSON^S DISEASE
  6. STALEVO [Suspect]
     Active Substance: CARBIDOPA\ENTACAPONE\LEVODOPA
     Indication: PARKINSON^S DISEASE
     Dosage: 200 OT, BID
     Route: 065
     Dates: start: 2008
  7. STALEVO [Suspect]
     Active Substance: CARBIDOPA\ENTACAPONE\LEVODOPA
     Dosage: 200 OT, TID
     Route: 065
  8. STALEVO [Suspect]
     Active Substance: CARBIDOPA\ENTACAPONE\LEVODOPA
     Dosage: 200 OT, 5X DAILY
     Route: 065
  9. AMANTADINE [Concomitant]
     Active Substance: AMANTADINE
     Indication: PARKINSON^S DISEASE
     Dosage: STARTED A YEAR AND HALF AGO
     Route: 065

REACTIONS (17)
  - Parkinson^s disease [Not Recovered/Not Resolved]
  - Insomnia [Unknown]
  - Dysstasia [Not Recovered/Not Resolved]
  - Fall [Not Recovered/Not Resolved]
  - Application site pain [Not Recovered/Not Resolved]
  - Gait disturbance [Not Recovered/Not Resolved]
  - Abasia [Not Recovered/Not Resolved]
  - Application site hypersensitivity [Unknown]
  - Application site pruritus [Not Recovered/Not Resolved]
  - Scratch [Unknown]
  - Hypertension [Unknown]
  - Depression [Unknown]
  - Malaise [Not Recovered/Not Resolved]
  - Application site erythema [Not Recovered/Not Resolved]
  - Musculoskeletal stiffness [Unknown]
  - Amnesia [Unknown]
  - Blood cholesterol increased [Unknown]

NARRATIVE: CASE EVENT DATE: 201609
